FAERS Safety Report 20307524 (Version 2)
Quarter: 2024Q3

REPORT INFORMATION
  Report Type: Report from Study
  Country: IT (occurrence: IT)
  Receive Date: 20220107
  Receipt Date: 20240919
  Transmission Date: 20241016
  Serious: Yes (Life-Threatening, Hospitalization, Other)
  Sender: AUROBINDO
  Company Number: IT-AUROBINDO-AUR-APL-2022-000211

PATIENT
  Age: 74 Year
  Sex: Male

DRUGS (6)
  1. MEROPENEM [Suspect]
     Active Substance: MEROPENEM
     Indication: Infection
     Dosage: 2 GRAM (2 GRAM (LOADING DOSE; OVER 2 HOURS, INFUSION))
     Route: 065
  2. MEROPENEM [Suspect]
     Active Substance: MEROPENEM
     Indication: Abdominal infection
     Dosage: 500 MILLIGRAM, FOUR TIMES/DAY (OVER 6H INFUSION)
     Route: 065
  3. MEROPENEM [Suspect]
     Active Substance: MEROPENEM
     Indication: Acinetobacter infection
  4. TIGECYCLINE [Suspect]
     Active Substance: TIGECYCLINE
     Indication: Infection
     Dosage: UNK
     Route: 065
  5. TIGECYCLINE [Suspect]
     Active Substance: TIGECYCLINE
     Indication: Acinetobacter infection
  6. TIGECYCLINE [Suspect]
     Active Substance: TIGECYCLINE
     Indication: Abdominal infection

REACTIONS (2)
  - Pathogen resistance [Unknown]
  - Treatment failure [Unknown]
